FAERS Safety Report 14036874 (Version 7)
Quarter: 2022Q1

REPORT INFORMATION
  Report Type: Spontaneous
  Country: US (occurrence: US)
  Receive Date: 20171004
  Receipt Date: 20220125
  Transmission Date: 20220424
  Serious: No
  Sender: FDA-Public Use
  Company Number: US-AMGEN-USASP2017148397

PATIENT
  Sex: Female
  Weight: 74.84 kg

DRUGS (1)
  1. ENBREL [Suspect]
     Active Substance: ETANERCEPT
     Indication: Rheumatoid arthritis
     Dosage: UNK
     Route: 065
     Dates: start: 200506, end: 201107

REACTIONS (4)
  - Upper respiratory tract infection [Unknown]
  - Arthralgia [Unknown]
  - Illness [Unknown]
  - Drug ineffective [Unknown]
